FAERS Safety Report 9170477 (Version 2)
Quarter: 2013Q2

REPORT INFORMATION
  Report Type: Spontaneous
  Country: US (occurrence: None)
  Receive Date: 20130312
  Receipt Date: 20130419
  Transmission Date: 20140414
  Serious: Yes (Hospitalization)
  Sender: FDA-Public Use
  Company Number: ACO_34692_2013

PATIENT
  Age: 67 Year
  Sex: Male
  Weight: 90.7 kg

DRUGS (9)
  1. AMPYRA [Suspect]
     Indication: GAIT DISTURBANCE
     Route: 048
     Dates: start: 20111004
  2. TYSABRI [Concomitant]
  3. HYDROCODONE/ACETAMINOPHEN [Concomitant]
  4. FINASTERIDE (FINASTERIDE) [Concomitant]
  5. WARFARIN SODIUM ( WARFARIN SODIUM) [Concomitant]
  6. TAMSULOSIN (TAMSULOSIN) [Concomitant]
  7. RANITIDINE (RANITIDINE HYDROCHLORIDE) [Concomitant]
  8. BACLOFEN (BACLOFEN) [Concomitant]
  9. FUROSEMIDE (FUROSEMIDE) [Concomitant]

REACTIONS (5)
  - Traumatic haemorrhage [None]
  - Multiple sclerosis relapse [None]
  - Fall [None]
  - Contusion [None]
  - Urinary tract infection [None]
